FAERS Safety Report 7492749-1 (Version None)
Quarter: 2011Q2

REPORT INFORMATION
  Report Type: 
  Country: None (occurrence: None)
  Receive Date: 20110519
  Receipt Date: 20110512
  Transmission Date: 20111010
  Serious: Yes (Death, Hospitalization)
  Sender: FDA-Public Use
  Company Number: NL-GENENTECH-316054

PATIENT
  Sex: Male
  Weight: 58 kg

DRUGS (11)
  1. ITRACONAZOLE [Suspect]
     Indication: GRAFT VERSUS HOST DISEASE
     Dosage: UNK
     Route: 065
     Dates: start: 20110315
  2. RITUXIMAB [Suspect]
     Indication: MALIGNANT LYMPHOID NEOPLASM
     Dosage: 270 MG, UNK
     Route: 042
     Dates: start: 20100921
  3. CIPROFLOXACIN HCL [Suspect]
     Indication: GRAFT VERSUS HOST DISEASE
     Dosage: UNK
     Route: 065
     Dates: start: 20110315
  4. LISINOPRIL [Concomitant]
     Indication: PRODUCT USED FOR UNKNOWN INDICATION
     Dosage: UNK
     Route: 048
  5. NEORAL [Concomitant]
     Indication: IMMUNOSUPPRESSION
     Dosage: UNK
     Route: 048
     Dates: start: 20101201
  6. FLUDARABINE PHOSPHATE [Suspect]
     Indication: MALIGNANT LYMPHOID NEOPLASM
     Dosage: 52.5 MG, UNK
     Route: 042
     Dates: start: 20101203
  7. PREDNISONE [Suspect]
     Indication: GRAFT VERSUS HOST DISEASE
     Dosage: UNK
     Route: 065
     Dates: start: 20110315
  8. CISPLATIN [Suspect]
     Indication: MALIGNANT LYMPHOID NEOPLASM
     Dosage: 174 MG, UNK
     Route: 042
     Dates: start: 20100921
  9. DEXAMETHASONE [Suspect]
     Indication: MALIGNANT LYMPHOID NEOPLASM
     Dosage: 40 MG, UNK
     Route: 048
     Dates: start: 20100921
  10. CYTARABINE [Suspect]
     Indication: MALIGNANT LYMPHOID NEOPLASM
     Dosage: 7000 MG, UNK
     Route: 042
     Dates: start: 20100922
  11. COTRIM [Suspect]
     Indication: GRAFT VERSUS HOST DISEASE
     Dosage: UNK
     Route: 065
     Dates: start: 20110315

REACTIONS (1)
  - DIARRHOEA [None]
